FAERS Safety Report 10215859 (Version 1)
Quarter: 2014Q2

REPORT INFORMATION
  Report Type: Report from Study
  Country: CA (occurrence: CA)
  Receive Date: 20140604
  Receipt Date: 20140604
  Transmission Date: 20141212
  Serious: Yes (Hospitalization)
  Sender: FDA-Public Use
  Company Number: CA-JNJFOC-20140518748

PATIENT
  Age: 36 Year
  Sex: Male
  Weight: 82.6 kg

DRUGS (6)
  1. REMICADE [Suspect]
     Indication: CROHN^S DISEASE
     Route: 042
     Dates: start: 201308
  2. CLOPIXOL [Concomitant]
     Route: 065
  3. CAPVAL [Concomitant]
     Route: 065
  4. SEROQUEL [Concomitant]
     Route: 065
  5. TYLENOL [Concomitant]
     Indication: PREMEDICATION
     Route: 048
  6. BENADRYL [Concomitant]
     Indication: PREMEDICATION
     Route: 048

REACTIONS (1)
  - Bipolar disorder [Recovered/Resolved]
